FAERS Safety Report 4501570-5 (Version None)
Quarter: 2004Q3

REPORT INFORMATION
  Report Type: 
  Country: None (occurrence: None)
  Receive Date: 20040928
  Receipt Date: 20040824
  Transmission Date: 20050211
  Serious: No
  Sender: FDA-Public Use
  Company Number: 04P-163-0271362-00

PATIENT
  Age: 69 Year
  Sex: Female
  Weight: 87.0906 kg

DRUGS (6)
  1. HUMIRA [Suspect]
     Indication: RHEUMATOID ARTHRITIS
     Dosage: 40 MG, 1 IN 2 WK, SUBCUTANEOUS
     Route: 058
     Dates: start: 20040601
  2. PROPACET 100 [Concomitant]
  3. NABUMETONE [Concomitant]
  4. TOCOPHEROL CONCENTRATE CAP [Concomitant]
  5. ASCORBIC ACID [Concomitant]
  6. MULTI-VITAMINS [Concomitant]

REACTIONS (4)
  - INJECTION SITE ERYTHEMA [None]
  - INJECTION SITE SWELLING [None]
  - INJECTION SITE WARMTH [None]
  - PRURITUS [None]
